FAERS Safety Report 7096398-9 (Version None)
Quarter: 2010Q4

REPORT INFORMATION
  Report Type: 
  Country: None (occurrence: None)
  Receive Date: 20101111
  Receipt Date: 20101101
  Transmission Date: 20110411
  Serious: Yes (Life-Threatening, Hospitalization, Other)
  Sender: FDA-Public Use
  Company Number: KR-JNJFOC-20101101685

PATIENT
  Age: 67 Year
  Sex: Male

DRUGS (1)
  1. FENTANYL TRANSDERMAL SYSTEM [Suspect]
     Indication: NECK PAIN
     Dosage: 10CM2
     Route: 062

REACTIONS (7)
  - ATRIAL FIBRILLATION [None]
  - CEREBRAL INFARCTION [None]
  - CHRONIC RESPIRATORY DISEASE [None]
  - COMA [None]
  - MENTAL STATUS CHANGES [None]
  - NARCOTIC INTOXICATION [None]
  - RESPIRATORY DEPRESSION [None]
